FAERS Safety Report 21108141 (Version 2)
Quarter: 2022Q4

REPORT INFORMATION
  Report Type: Spontaneous
  Country: US (occurrence: US)
  Receive Date: 20220720
  Receipt Date: 20221223
  Transmission Date: 20230113
  Serious: No
  Sender: FDA-Public Use
  Company Number: US-SA-2022SA280528

PATIENT
  Sex: Female

DRUGS (2)
  1. CEREZYME [Suspect]
     Active Substance: IMIGLUCERASE
     Indication: Gaucher^s disease
     Dosage: 2800 U, QOW
     Route: 042
     Dates: start: 201004
  2. CEREZYME [Suspect]
     Active Substance: IMIGLUCERASE
     Dosage: 3200 U, QOW
     Route: 042
     Dates: start: 201004

REACTIONS (1)
  - Poor venous access [Unknown]
